FAERS Safety Report 19902020 (Version 1)
Quarter: 2021Q3

REPORT INFORMATION
  Report Type: Report from Study
  Country: US (occurrence: US)
  Receive Date: 20210930
  Receipt Date: 20210930
  Transmission Date: 20211014
  Serious: Yes (Other)
  Sender: FDA-Public Use
  Company Number: US-IPSEN BIOPHARMACEUTICALS, INC.-2021-23487

PATIENT

DRUGS (1)
  1. IRINOTECAN MONOHYDROCHLORIDE TRIHYDRATE [Suspect]
     Active Substance: IRINOTECAN HYDROCHLORIDE
     Indication: PANCREATIC CARCINOMA METASTATIC
     Dosage: NOT REPORTED
     Route: 065

REACTIONS (3)
  - Toxicity to various agents [Unknown]
  - Off label use [Unknown]
  - Disease progression [Unknown]
